FAERS Safety Report 19287816 (Version 4)
Quarter: 2021Q3

REPORT INFORMATION
  Report Type: Report from Study
  Country: US (occurrence: US)
  Receive Date: 20210521
  Receipt Date: 20210926
  Transmission Date: 20211014
  Serious: Yes (Hospitalization, Other)
  Sender: FDA-Public Use
  Company Number: US-BIOVITRUM-2021US2394

PATIENT
  Sex: Male

DRUGS (3)
  1. KINERET [Suspect]
     Active Substance: ANAKINRA
     Route: 058
  2. FLUOROURACIL. [Concomitant]
     Active Substance: FLUOROURACIL
  3. KINERET [Suspect]
     Active Substance: ANAKINRA
     Indication: PRODUCT USED FOR UNKNOWN INDICATION
     Route: 058

REACTIONS (10)
  - Cystitis [Unknown]
  - Haemorrhage urinary tract [Unknown]
  - Colitis [Unknown]
  - Radiation injury [Unknown]
  - Internal haemorrhage [Unknown]
  - Urinary tract infection [Unknown]
  - Condition aggravated [Unknown]
  - Drug ineffective [Unknown]
  - Neoplasm malignant [Unknown]
  - Skin cancer [Unknown]
